FAERS Safety Report 17974353 (Version 1)
Quarter: 2020Q3

REPORT INFORMATION
  Report Type: Spontaneous
  Country: US (occurrence: US)
  Receive Date: 20200702
  Receipt Date: 20200702
  Transmission Date: 20201103
  Serious: Yes (Other)
  Sender: FDA-Public Use
  Company Number: None

PATIENT
  Age: 63 Year
  Sex: Male
  Weight: 122 kg

DRUGS (5)
  1. REMDESIVIR. [Suspect]
     Active Substance: REMDESIVIR
     Indication: COVID-19
     Dosage: ?          OTHER FREQUENCY:ONCE;?
     Route: 042
     Dates: start: 20200701
  2. DEXAMETHASONE 6 MG DAILY [Concomitant]
     Dates: start: 20200630
  3. CONVALESCENT PLASMA [Concomitant]
     Active Substance: HUMAN PLASMA
     Dates: start: 20200701, end: 20200701
  4. ACETAMINOPHEN 650 MG EVERY 4 HOURS AS NEEDED [Concomitant]
     Dates: start: 20200630
  5. ENOXAPARIN 40 MG DAILY [Concomitant]
     Dates: start: 20200630

REACTIONS (1)
  - Bradycardia [None]

NARRATIVE: CASE EVENT DATE: 20200701
